FAERS Safety Report 5798663-1 (Version None)
Quarter: 2008Q2

REPORT INFORMATION
  Report Type: 
  Country: None (occurrence: None)
  Receive Date: 20080630
  Receipt Date: 20071011
  Transmission Date: 20081010
  Serious: Yes (Life-Threatening, Hospitalization)
  Sender: FDA-Public Use
  Company Number: FABR-12177

PATIENT
  Sex: Male

DRUGS (9)
  1. FABRAZYME [Suspect]
     Indication: FABRY'S DISEASE
     Dosage: 35 MG, INTRAVENOUS
     Route: 042
  2. FABRAZYME [Suspect]
     Indication: DIARRHOEA
  3. ASPIRIN [Concomitant]
  4. CARBAMAZEPINE [Concomitant]
  5. SOTALOL HCL [Concomitant]
  6. PROCYCLIDINE HYDROCHLORIDE 2MG TAB [Concomitant]
  7. LANSOPRASOLE [Concomitant]
  8. NICORANDIL (NICORANDIL) [Concomitant]
  9. LOPERAMIDE [Suspect]
     Indication: DIARRHOEA
     Dosage: 0,

REACTIONS (5)
  - BLISTER [None]
  - DYSPNOEA [None]
  - HYPERSENSITIVITY [None]
  - RASH [None]
  - SWOLLEN TONGUE [None]
